FAERS Safety Report 9264265 (Version 1)
Quarter: 2013Q2

REPORT INFORMATION
  Report Type: Spontaneous
  Country: IT (occurrence: IT)
  Receive Date: 20130430
  Receipt Date: 20130430
  Transmission Date: 20140414
  Serious: Yes (Hospitalization)
  Sender: FDA-Public Use
  Company Number: PHHY2013IT040986

PATIENT
  Sex: Male

DRUGS (2)
  1. AZITHROMYCIN [Suspect]
  2. ITRACONAZOLE [Suspect]

REACTIONS (3)
  - Haemolytic anaemia [Recovered/Resolved with Sequelae]
  - Jaundice [Recovered/Resolved with Sequelae]
  - Thrombocytopenia [Recovered/Resolved with Sequelae]
